FAERS Safety Report 25582592 (Version 2)
Quarter: 2025Q3

REPORT INFORMATION
  Report Type: Spontaneous
  Country: US (occurrence: US)
  Receive Date: 20250720
  Receipt Date: 20250731
  Transmission Date: 20251020
  Serious: No
  Sender: SANOFI AVENTIS
  Company Number: US-SA-2025SA203667

PATIENT
  Sex: Male
  Weight: 101.36 kg

DRUGS (26)
  1. DUPIXENT [Suspect]
     Active Substance: DUPILUMAB
     Indication: Asthma
     Dosage: 300 MG, QOW
     Route: 058
  2. MOUNJARO [Concomitant]
     Active Substance: TIRZEPATIDE
  3. TRESIBA [Concomitant]
     Active Substance: INSULIN DEGLUDEC
  4. ELIQUIS [Concomitant]
     Active Substance: APIXABAN
  5. TRAZODONE [Concomitant]
     Active Substance: TRAZODONE HYDROCHLORIDE
  6. TRAVOPROST [Concomitant]
     Active Substance: TRAVOPROST
  7. LINZESS [Concomitant]
     Active Substance: LINACLOTIDE
  8. CYANOCOBALAMIN [Concomitant]
     Active Substance: CYANOCOBALAMIN
  9. OMEPRAZOLE [Concomitant]
     Active Substance: OMEPRAZOLE
  10. CLONIDINE [Concomitant]
     Active Substance: CLONIDINE
  11. LATANOPROST [Concomitant]
     Active Substance: LATANOPROST
  12. TIZANIDINE [Concomitant]
     Active Substance: TIZANIDINE
  13. METHOCARBAMOL [Concomitant]
     Active Substance: METHOCARBAMOL
  14. DULOXETINE [Concomitant]
     Active Substance: DULOXETINE
  15. BISOPROLOL FUMARATE [Concomitant]
     Active Substance: BISOPROLOL FUMARATE
  16. TRELEGY ELLIPTA [Concomitant]
     Active Substance: FLUTICASONE FUROATE\UMECLIDINIUM BROMIDE\VILANTEROL TRIFENATATE
  17. POTASSIUM CHLORIDE [Concomitant]
     Active Substance: POTASSIUM CHLORIDE
  18. ATORVASTATIN CALCIUM [Concomitant]
     Active Substance: ATORVASTATIN CALCIUM
  19. VALSARTAN [Concomitant]
     Active Substance: VALSARTAN
  20. ALBUTEROL SULFATE [Concomitant]
     Active Substance: ALBUTEROL SULFATE
  21. LASIX [Concomitant]
     Active Substance: FUROSEMIDE
  22. PULMICORT TURBUHALER [Concomitant]
     Active Substance: BUDESONIDE
  23. LEVEMIR [Concomitant]
     Active Substance: INSULIN DETEMIR
  24. NOVOLOG [Concomitant]
     Active Substance: INSULIN ASPART
  25. PRILOSEC OTC [Concomitant]
     Active Substance: OMEPRAZOLE MAGNESIUM
  26. CLONIDINE HYDROCHLORIDE [Concomitant]
     Active Substance: CLONIDINE HYDROCHLORIDE

REACTIONS (1)
  - Dyspnoea [Unknown]
